FAERS Safety Report 8050653-4 (Version None)
Quarter: 2012Q1

REPORT INFORMATION
  Report Type: 
  Country: None (occurrence: None)
  Receive Date: 20120117
  Receipt Date: 20120110
  Transmission Date: 20120608
  Serious: Yes (Hospitalization)
  Sender: FDA-Public Use
  Company Number: US-US-EMD SERONO, INC.-7106502

PATIENT
  Sex: Female

DRUGS (3)
  1. MOTRIN [Concomitant]
     Indication: INFLUENZA LIKE ILLNESS
  2. REBIF [Suspect]
     Route: 058
     Dates: start: 20110801
  3. REBIF [Suspect]
     Indication: MULTIPLE SCLEROSIS
     Route: 058
     Dates: start: 20110309, end: 20110601

REACTIONS (6)
  - FATIGUE [None]
  - INJECTION SITE PAIN [None]
  - SOMNOLENCE [None]
  - INJECTION SITE REACTION [None]
  - INJECTION SITE HAEMATOMA [None]
  - PNEUMONIA [None]
